FAERS Safety Report 7156463-4 (Version None)
Quarter: 2010Q4

REPORT INFORMATION
  Report Type: 
  Country: None (occurrence: None)
  Receive Date: 20101214
  Receipt Date: 20091117
  Transmission Date: 20110411
  Serious: No
  Sender: FDA-Public Use
  Company Number: US-ASTRAZENECA-2009SE27146

PATIENT
  Age: 999 Month
  Sex: Male
  Weight: 79.4 kg

DRUGS (1)
  1. CRESTOR [Suspect]
     Route: 048
     Dates: start: 20090501

REACTIONS (1)
  - MUSCLE SPASMS [None]
